FAERS Safety Report 6989329-0 (Version None)
Quarter: 2010Q3

REPORT INFORMATION
  Report Type: 
  Country: None (occurrence: None)
  Receive Date: 20100916
  Receipt Date: 20100903
  Transmission Date: 20110219
  Serious: Yes (Other)
  Sender: FDA-Public Use
  Company Number: GB-WATSON-2010-12027

PATIENT
  Age: 68 Year
  Sex: Female

DRUGS (6)
  1. RISPERDONE [Suspect]
     Indication: MAJOR DEPRESSION
     Dosage: UNK
     Route: 048
     Dates: start: 20090912, end: 20100610
  2. LITHIUM CARBONATE [Suspect]
     Indication: DEPRESSION
     Dosage: 400 MG, UNKNOWN
     Route: 048
     Dates: start: 20100514, end: 20100606
  3. DIAZEPAM [Concomitant]
     Indication: PRODUCT USED FOR UNKNOWN INDICATION
  4. MIRTAZAPINE [Concomitant]
     Indication: PRODUCT USED FOR UNKNOWN INDICATION
  5. PERINDOPRIL [Concomitant]
     Indication: PRODUCT USED FOR UNKNOWN INDICATION
  6. VENLAFAXINE [Concomitant]
     Indication: PRODUCT USED FOR UNKNOWN INDICATION

REACTIONS (4)
  - COGWHEEL RIGIDITY [None]
  - DRUG INTERACTION [None]
  - GAIT DISTURBANCE [None]
  - TREMOR [None]
